FAERS Safety Report 6839476-9 (Version None)
Quarter: 2010Q3

REPORT INFORMATION
  Report Type: 
  Country: None (occurrence: None)
  Receive Date: 20100714
  Receipt Date: 20090731
  Transmission Date: 20110219
  Serious: No
  Sender: FDA-Public Use
  Company Number: A0799888A

PATIENT
  Age: 78 Year
  Sex: Female

DRUGS (5)
  1. FLOVENT [Suspect]
     Indication: ASTHMA
     Route: 055
     Dates: start: 20080701
  2. NEBIVOLOL [Concomitant]
  3. ZANTAC OTC [Concomitant]
  4. TRAVATAN [Concomitant]
  5. FOSAMAX [Concomitant]

REACTIONS (3)
  - DRY THROAT [None]
  - DYSPHONIA [None]
  - OROPHARYNGEAL PAIN [None]
